FAERS Safety Report 20913769 (Version 3)
Quarter: 2022Q4

REPORT INFORMATION
  Report Type: Spontaneous
  Country: DE (occurrence: DE)
  Receive Date: 20220604
  Receipt Date: 20221205
  Transmission Date: 20230113
  Serious: Yes (Hospitalization, Other)
  Sender: FDA-Public Use
  Company Number: DE-NOVARTISPH-NVSC2022DE071080

PATIENT
  Age: 60 Year
  Sex: Male

DRUGS (23)
  1. PACLITAXEL [Suspect]
     Active Substance: PACLITAXEL
     Indication: Non-small cell lung cancer
     Dosage: 175 MG, QW
     Route: 065
     Dates: start: 20220121, end: 20220225
  2. PACLITAXEL [Suspect]
     Active Substance: PACLITAXEL
     Dosage: 175 MG, QW
     Route: 065
     Dates: start: 20220121, end: 20220211
  3. CARBOPLATIN [Suspect]
     Active Substance: CARBOPLATIN
     Indication: Non-small cell lung cancer
     Dosage: 688 MG, BID FREQUENCY: TWICE
     Route: 042
     Dates: start: 20220121, end: 20220311
  4. CARBOPLATIN [Suspect]
     Active Substance: CARBOPLATIN
     Dosage: 688 MG, BID (TWICE)
     Route: 042
     Dates: start: 20220121, end: 20220211
  5. OPDIVO [Suspect]
     Active Substance: NIVOLUMAB
     Indication: Non-small cell lung cancer
     Dosage: 360 MG, TIW
     Route: 042
     Dates: start: 20220121
  6. OPDIVO [Suspect]
     Active Substance: NIVOLUMAB
     Dosage: 3 CYCLES OF IPILIMUMAB AND NIVOLUMAB
     Route: 065
     Dates: start: 202207, end: 202210
  7. OPDIVO [Suspect]
     Active Substance: NIVOLUMAB
     Dosage: 3 CYCLES OF IPILIMUMAB AND NIVOLUMAB
     Route: 065
     Dates: start: 202202, end: 202206
  8. YERVOY [Suspect]
     Active Substance: IPILIMUMAB
     Indication: Non-small cell lung cancer
     Dosage: 60 MG, TIW
     Route: 042
     Dates: start: 20210121
  9. YERVOY [Suspect]
     Active Substance: IPILIMUMAB
     Dosage: 60 MG (6 TIMES IN A WEEK)
     Route: 042
     Dates: start: 20220121
  10. YERVOY [Suspect]
     Active Substance: IPILIMUMAB
     Dosage: 3 CYCLE OF IPILIMUMAB AND NIVOLUMAB
     Route: 065
     Dates: start: 202207, end: 202210
  11. YERVOY [Suspect]
     Active Substance: IPILIMUMAB
     Dosage: 3 CYCLE OF IPILIMUMAB AND NIVOLUMAB
     Route: 065
     Dates: start: 202202, end: 202206
  12. FOLIC ACID [Concomitant]
     Active Substance: FOLIC ACID
     Indication: Prophylaxis
     Dosage: UNK
     Route: 065
     Dates: end: 20220213
  13. DEXAMETHASONE [Concomitant]
     Active Substance: DEXAMETHASONE
     Indication: Prophylaxis
     Dosage: UNK
     Route: 065
     Dates: end: 20220211
  14. DEXAMETHASONE [Concomitant]
     Active Substance: DEXAMETHASONE
     Dosage: UNK
     Route: 065
     Dates: start: 20220413, end: 20220414
  15. DEXAMETHASONE [Concomitant]
     Active Substance: DEXAMETHASONE
     Dosage: UNK
     Route: 065
     Dates: start: 20220605
  16. ASPIRIN [Concomitant]
     Active Substance: ASPIRIN
     Indication: Product used for unknown indication
     Dosage: UNK (100)
     Route: 065
  17. SIMVASTATIN [Concomitant]
     Active Substance: SIMVASTATIN
     Indication: Prophylaxis
     Dosage: UNK
     Route: 065
  18. RAMIPRIL [Concomitant]
     Active Substance: RAMIPRIL
     Indication: Product used for unknown indication
     Dosage: UNK
     Route: 065
  19. PANTOPRAZOLE SODIUM [Concomitant]
     Active Substance: PANTOPRAZOLE SODIUM
     Indication: Prophylaxis
     Dosage: UNK
     Route: 065
  20. KEPPRA [Concomitant]
     Active Substance: LEVETIRACETAM
     Indication: Product used for unknown indication
     Dosage: UNK
     Route: 065
     Dates: start: 20220605
  21. HYDROCORTISONE [Concomitant]
     Active Substance: HYDROCORTISONE
     Indication: Product used for unknown indication
     Dosage: UNK
     Route: 065
     Dates: start: 20220415
  22. LEVOTHYROXINE [Concomitant]
     Active Substance: LEVOTHYROXINE
     Indication: Product used for unknown indication
     Dosage: UNK
     Route: 065
     Dates: start: 20220415
  23. GLANDOMED [Concomitant]
     Indication: Product used for unknown indication
     Dosage: UNK
     Route: 065
     Dates: start: 20220701

REACTIONS (9)
  - Nausea [Recovering/Resolving]
  - Hypopituitarism [Recovered/Resolved with Sequelae]
  - Addison^s disease [Recovering/Resolving]
  - Partial seizures [Not Recovered/Not Resolved]
  - Pneumonia [Unknown]
  - Adrenocortical insufficiency acute [Unknown]
  - Dry skin [Recovered/Resolved]
  - Epistaxis [Recovering/Resolving]
  - Fatigue [Recovering/Resolving]

NARRATIVE: CASE EVENT DATE: 20220121
